FAERS Safety Report 14492493 (Version 1)
Quarter: 2018Q1

REPORT INFORMATION
  Report Type: Spontaneous
  Country: US (occurrence: US)
  Receive Date: 20180205
  Receipt Date: 20180205
  Transmission Date: 20180509
  Serious: Yes (Other)
  Sender: FDA-Public Use
  Company Number: None

PATIENT

DRUGS (1)
  1. EMEND [Suspect]
     Active Substance: APREPITANT

REACTIONS (7)
  - Blood pressure systolic increased [None]
  - Flushing [None]
  - Dyspnoea [None]
  - Feeling hot [None]
  - Chest discomfort [None]
  - Therapy cessation [None]
  - Oxygen saturation decreased [None]
